FAERS Safety Report 25225420 (Version 1)
Quarter: 2025Q2

REPORT INFORMATION
  Report Type: Spontaneous
  Country: RU (occurrence: RU)
  Receive Date: 20250422
  Receipt Date: 20250422
  Transmission Date: 20250717
  Serious: Yes (Life-Threatening)
  Sender: SANDOZ
  Company Number: RU-SANDOZ-SDZ2023RU020620

PATIENT
  Sex: Female
  Weight: 71 kg

DRUGS (1)
  1. FORADIL [Suspect]
     Active Substance: FORMOTEROL FUMARATE
     Indication: Asthma
     Route: 055
     Dates: start: 20200130, end: 20230808

REACTIONS (1)
  - Dyspnoea [Recovered/Resolved]

NARRATIVE: CASE EVENT DATE: 20230731
